FAERS Safety Report 6804922-3 (Version None)
Quarter: 2010Q2

REPORT INFORMATION
  Report Type: 
  Country: None (occurrence: None)
  Receive Date: 20100628
  Receipt Date: 20070705
  Transmission Date: 20101027
  Serious: No
  Sender: FDA-Public Use
  Company Number: US-PFIZER INC-2007055617

PATIENT
  Sex: Male
  Weight: 84 kg

DRUGS (3)
  1. CADUET [Suspect]
     Indication: HYPERTENSION
     Dates: start: 20070601, end: 20070601
  2. CADUET [Suspect]
     Indication: BLOOD CHOLESTEROL
  3. ALLOPURINOL [Concomitant]
     Indication: GOUT

REACTIONS (4)
  - BACK PAIN [None]
  - FATIGUE [None]
  - MUSCULOSKELETAL PAIN [None]
  - NECK PAIN [None]
